FAERS Safety Report 9538363 (Version 1)
Quarter: 2013Q3

REPORT INFORMATION
  Report Type: Spontaneous
  Country: US (occurrence: US)
  Receive Date: 20130920
  Receipt Date: 20130920
  Transmission Date: 20140515
  Serious: Yes (Other)
  Sender: FDA-Public Use
  Company Number: US-JNJFOC-20130908299

PATIENT
  Age: 62 Year
  Sex: Male
  Weight: 88 kg

DRUGS (6)
  1. XARELTO [Suspect]
     Indication: DEEP VEIN THROMBOSIS
     Route: 048
     Dates: start: 201306, end: 20130906
  2. BENADRYL [Concomitant]
     Route: 065
  3. ASPIRIN [Concomitant]
     Route: 048
  4. HYZAAR [Concomitant]
     Indication: BLOOD PRESSURE
     Route: 065
  5. LABETALOL [Concomitant]
     Indication: HYPERTENSION
     Route: 048
  6. MYCOPHENOLATE MOFETIL [Concomitant]
     Route: 048

REACTIONS (2)
  - Colonoscopy [Recovered/Resolved]
  - Polyp [Recovered/Resolved]
